FAERS Safety Report 7457696-X (Version None)
Quarter: 2011Q2

REPORT INFORMATION
  Report Type: 
  Country: None (occurrence: None)
  Receive Date: 20110504
  Receipt Date: 20110428
  Transmission Date: 20111010
  Serious: Yes (Death, Hospitalization)
  Sender: FDA-Public Use
  Company Number: US-ALEXION-A201001572

PATIENT
  Sex: Male

DRUGS (2)
  1. CYCLOSPORINE [Concomitant]
     Dosage: UNK
     Dates: end: 20101201
  2. SOLIRIS [Suspect]
     Indication: PAROXYSMAL NOCTURNAL HAEMOGLOBINURIA
     Dosage: 900 MG, Q2W
     Route: 042
     Dates: end: 20101214

REACTIONS (7)
  - FEBRILE NEUTROPENIA [None]
  - APLASTIC ANAEMIA [None]
  - STOMATITIS [None]
  - SEPTIC SHOCK [None]
  - MULTI-ORGAN FAILURE [None]
  - KLEBSIELLA INFECTION [None]
  - BRONCHOPULMONARY ASPERGILLOSIS [None]
